FAERS Safety Report 7044583-4 (Version None)
Quarter: 2010Q4

REPORT INFORMATION
  Report Type: 
  Country: None (occurrence: None)
  Receive Date: 20101014
  Receipt Date: 20101001
  Transmission Date: 20110411
  Serious: Yes (Hospitalization)
  Sender: FDA-Public Use
  Company Number: US-DENTSPLY-2010-0091-EUR

PATIENT
  Age: 61 Year
  Sex: Male
  Weight: 90.8 kg

DRUGS (2)
  1. 4% CITANEST PLAIN DENTAL [Suspect]
     Indication: LOCAL ANAESTHESIA
     Dates: start: 20100922, end: 20100922
  2. POLOCAINE [Suspect]
     Indication: LOCAL ANAESTHESIA
     Dates: start: 20100922, end: 20100922

REACTIONS (3)
  - BLOOD PRESSURE INCREASED [None]
  - HEART RATE INCREASED [None]
  - TREMOR [None]
